FAERS Safety Report 7494403-9 (Version None)
Quarter: 2011Q2

REPORT INFORMATION
  Report Type: 
  Country: None (occurrence: None)
  Receive Date: 20110520
  Receipt Date: 20110509
  Transmission Date: 20111010
  Serious: Yes (Other)
  Sender: FDA-Public Use
  Company Number: US-JNJFOC-20110504189

PATIENT
  Sex: Female
  Weight: 45.36 kg

DRUGS (6)
  1. FOLIC ACID [Concomitant]
     Route: 048
  2. METOPROLOL SUCCINATE [Concomitant]
     Indication: HYPERTENSION
     Route: 048
  3. PAIN MEDICATION [Concomitant]
     Indication: PAIN
  4. GABAPENTIN [Concomitant]
     Indication: PAIN
     Route: 048
  5. SIMPONI [Suspect]
     Indication: RHEUMATOID ARTHRITIS
     Route: 058
     Dates: start: 20100101
  6. POTASSIUM [Concomitant]
     Route: 048

REACTIONS (3)
  - MACULAR DEGENERATION [None]
  - DRUG DOSE OMISSION [None]
  - DEVICE MALFUNCTION [None]
